FAERS Safety Report 6036146-4 (Version None)
Quarter: 2009Q1

REPORT INFORMATION
  Report Type: 
  Country: None (occurrence: None)
  Receive Date: 20090113
  Receipt Date: 20081204
  Transmission Date: 20090719
  Serious: Yes (Other)
  Sender: FDA-Public Use
  Company Number: JP-PFIZER INC-2008153631

PATIENT

DRUGS (12)
  1. CHAMPIX [Suspect]
     Dosage: UNK
     Route: 048
     Dates: start: 20081023
  2. GASMOTIN [Concomitant]
     Route: 048
  3. SELBEX [Concomitant]
     Route: 048
  4. PRIMPERAN TAB [Concomitant]
     Route: 048
  5. DIAZEPAM [Concomitant]
     Route: 048
  6. SERENACE [Concomitant]
     Route: 048
  7. HIBON [Concomitant]
     Route: 048
  8. DEPAS [Concomitant]
     Route: 048
  9. LORAMET [Concomitant]
     Route: 048
  10. AKINETON [Concomitant]
     Route: 048
  11. BENZALIN [Concomitant]
     Route: 048
  12. LOXONIN [Concomitant]
     Route: 048

REACTIONS (1)
  - ABORTION [None]
